FAERS Safety Report 10096717 (Version 2)
Quarter: 2014Q2

REPORT INFORMATION
  Report Type: Spontaneous
  Country: JP (occurrence: JP)
  Receive Date: 20140422
  Receipt Date: 20140422
  Transmission Date: 20141212
  Serious: Yes (Other)
  Sender: FDA-Public Use
  Company Number: PHHY2014JP041602

PATIENT
  Age: 81 Year
  Sex: Male

DRUGS (8)
  1. REMIFENTANIL [Suspect]
     Indication: ANAESTHESIA
     Dosage: 0.25 UG/KG/MIN
  2. REMIFENTANIL [Interacting]
     Dosage: 0.5 UG/KG/MIN
  3. PROPOFOL [Interacting]
     Indication: ANAESTHESIA
     Dosage: 50 MG, UNK
  4. LIDOCAINE [Interacting]
     Dosage: 5 ML 1 %
     Route: 008
  5. FENTANYL [Interacting]
     Indication: ANAESTHESIA
     Dosage: 100 UG, UNK
  6. ROCURONIUM BROMIDE [Interacting]
     Indication: MUSCLE RELAXANT THERAPY
     Dosage: 40 MG, UNK
  7. SEVOFLURANE [Suspect]
     Indication: ANAESTHESIA
  8. LEVOBUPIVACAINE [Interacting]
     Indication: ANAESTHESIA
     Dosage: 0.15% 4 ML/HOUR

REACTIONS (4)
  - Sinoatrial block [Unknown]
  - Sick sinus syndrome [Unknown]
  - Cardiac arrest [Recovered/Resolved]
  - Bradycardia [Recovered/Resolved]
